FAERS Safety Report 7668747-1 (Version None)
Quarter: 2011Q3

REPORT INFORMATION
  Report Type: 
  Country: None (occurrence: None)
  Receive Date: 20110808
  Receipt Date: 20110805
  Transmission Date: 20111222
  Serious: Yes (Death, Life-Threatening, Hospitalization, Other)
  Sender: FDA-Public Use
  Company Number: JP-ABBOTT-11P-087-0702405-00

PATIENT
  Sex: Female
  Weight: 46 kg

DRUGS (3)
  1. PREDNISOLONE [Concomitant]
     Indication: RHEUMATOID ARTHRITIS
     Route: 048
     Dates: start: 20100624
  2. METHOTREXATE [Concomitant]
     Indication: RHEUMATOID ARTHRITIS
     Dosage: ADM. IN DIVIDED DOSE 4MG, 2MG AND 2MG/W
     Route: 048
     Dates: start: 20100624
  3. HUMIRA [Suspect]
     Indication: RHEUMATOID ARTHRITIS
     Route: 058
     Dates: start: 20100927, end: 20110119

REACTIONS (6)
  - GASTRIC ULCER [None]
  - MULTI-ORGAN FAILURE [None]
  - DISSEMINATED TUBERCULOSIS [None]
  - DISSEMINATED INTRAVASCULAR COAGULATION [None]
  - DECREASED APPETITE [None]
  - ACUTE RESPIRATORY DISTRESS SYNDROME [None]
